FAERS Safety Report 15234747 (Version 2)
Quarter: 2018Q3

REPORT INFORMATION
  Report Type: Report from Study
  Country: IT (occurrence: IT)
  Receive Date: 20180803
  Receipt Date: 20180928
  Transmission Date: 20181010
  Serious: Yes (Hospitalization)
  Sender: FDA-Public Use
  Company Number: IT-TEVA-2018-IT-934019

PATIENT
  Age: 52 Year
  Sex: Male

DRUGS (5)
  1. LOSARTAN POTASSIUM. [Suspect]
     Active Substance: LOSARTAN POTASSIUM
     Indication: INTENTIONAL SELF-INJURY
     Route: 048
     Dates: start: 20180122, end: 20180122
  2. DEPAKIN [Suspect]
     Active Substance: VALPROATE SODIUM
     Indication: INTENTIONAL SELF-INJURY
     Route: 048
     Dates: start: 20180122, end: 20180122
  3. ATENOLOL. [Suspect]
     Active Substance: ATENOLOL
     Indication: INTENTIONAL SELF-INJURY
     Route: 048
     Dates: start: 20180122, end: 20180122
  4. QUETIAPINE. [Suspect]
     Active Substance: QUETIAPINE
     Indication: INTENTIONAL SELF-INJURY
     Route: 048
     Dates: start: 20180122, end: 20180122
  5. IMOVANE [Suspect]
     Active Substance: ZOPICLONE
     Indication: INTENTIONAL SELF-INJURY
     Route: 048
     Dates: start: 20180122, end: 20180122

REACTIONS (6)
  - Oxygen saturation decreased [Recovered/Resolved]
  - Hypotension [Recovered/Resolved]
  - Sopor [Recovered/Resolved]
  - Intentional overdose [Recovered/Resolved]
  - Myoglobin blood increased [Recovered/Resolved]
  - Coma scale abnormal [Recovered/Resolved]

NARRATIVE: CASE EVENT DATE: 20180123
